FAERS Safety Report 21934928 (Version 5)
Quarter: 2023Q4

REPORT INFORMATION
  Report Type: Spontaneous
  Country: US (occurrence: US)
  Receive Date: 20230201
  Receipt Date: 20231101
  Transmission Date: 20240109
  Serious: Yes (Other)
  Sender: FDA-Public Use
  Company Number: US-002147023-NVSC2023US019668

PATIENT
  Sex: Female

DRUGS (22)
  1. KESIMPTA [Suspect]
     Active Substance: OFATUMUMAB
     Indication: Relapsing-remitting multiple sclerosis
     Dosage: 20 MG, QMO
     Route: 065
     Dates: start: 20210306
  2. KESIMPTA [Suspect]
     Active Substance: OFATUMUMAB
     Dosage: UNK, EACH X3
     Route: 065
     Dates: start: 20230215
  3. KESIMPTA [Suspect]
     Active Substance: OFATUMUMAB
     Dosage: 20 MG, Q6W
     Route: 065
     Dates: start: 20230324
  4. TYSABRI [Suspect]
     Active Substance: NATALIZUMAB
     Indication: Product used for unknown indication
     Dosage: UNK
     Route: 065
  5. CALCIUM CARBONATE\CHOLECALCIFEROL [Suspect]
     Active Substance: CALCIUM CARBONATE\CHOLECALCIFEROL
     Indication: Product used for unknown indication
     Dosage: UNK, QD, (1-2 BY MOUTH)
     Route: 048
     Dates: start: 20220305
  6. OCRELIZUMAB [Suspect]
     Active Substance: OCRELIZUMAB
     Indication: Product used for unknown indication
     Dosage: UNK
     Route: 065
  7. SOLU-MEDROL [Concomitant]
     Active Substance: METHYLPREDNISOLONE SODIUM SUCCINATE
     Indication: Product used for unknown indication
     Dosage: UNK, QD, INFUSE OVER THE 1.5 TO 2 HOURS
     Route: 042
  8. VITAMINS [Concomitant]
     Active Substance: VITAMINS
     Indication: Product used for unknown indication
     Dosage: 1 DOSAGE FORM, QD
     Route: 048
  9. VITAMIN D3 [Concomitant]
     Active Substance: CHOLECALCIFEROL
     Indication: Product used for unknown indication
     Dosage: 2 DOSAGE FORM, QD, (2000 UNIT)
     Route: 048
     Dates: start: 20120305
  10. CIPROFLOXACIN HYDROCHLORIDE [Concomitant]
     Active Substance: CIPROFLOXACIN HYDROCHLORIDE
     Indication: Product used for unknown indication
     Dosage: 1 DOSAGE FORM, BID
     Route: 048
     Dates: start: 20200629
  11. VITAMIN B6 [Concomitant]
     Active Substance: PYRIDOXINE HYDROCHLORIDE
     Indication: Product used for unknown indication
     Dosage: 1 DOSAGE FORM, QD
     Route: 048
  12. VITAMIN C [Concomitant]
     Active Substance: ASCORBIC ACID
     Indication: Product used for unknown indication
     Dosage: 1 DOSAGE FORM, QD
     Route: 048
  13. CITALOPRAM [Concomitant]
     Active Substance: CITALOPRAM HYDROBROMIDE
     Indication: Product used for unknown indication
     Dosage: 1 DOSAGE FORM, QD
     Route: 048
     Dates: start: 20220104
  14. CITALOPRAM [Concomitant]
     Active Substance: CITALOPRAM HYDROBROMIDE
     Dosage: 90 DOSAGE FORM
     Route: 065
     Dates: start: 20220927
  15. ARMODAFINIL [Concomitant]
     Active Substance: ARMODAFINIL
     Indication: Product used for unknown indication
     Dosage: UNK, QD, TAKE HALF TABLET TO 1 TABLET
     Route: 048
     Dates: start: 20220526
  16. ARMODAFINIL [Concomitant]
     Active Substance: ARMODAFINIL
     Dosage: 30 DOSAGE FORM
     Route: 065
     Dates: start: 20230824
  17. GABAPENTIN [Concomitant]
     Active Substance: GABAPENTIN
     Indication: Product used for unknown indication
     Dosage: 1 DOSAGE FORM, TID
     Route: 048
     Dates: start: 20120104
  18. GABAPENTIN [Concomitant]
     Active Substance: GABAPENTIN
     Dosage: 270 DOSAGE FORM
     Route: 065
     Dates: start: 20220927
  19. DIPHENHYDRAMINE HYDROCHLORIDE [Concomitant]
     Active Substance: DIPHENHYDRAMINE HYDROCHLORIDE
     Indication: Product used for unknown indication
     Dosage: UNK, QD, (TAKE 1-2 TABLET BY MOUTH AS DIRECTED TAKE 1-2 TABLETS PRIOR TO INFUSION.)
     Route: 048
     Dates: start: 20230124
  20. ACETAMINOPHEN [Concomitant]
     Active Substance: ACETAMINOPHEN
     Indication: Product used for unknown indication
     Dosage: 1 DOSAGE FORM, QD, TAKE 1-2 TABLETS BY MOUTH PRIOR TO INFUSION. MAY REPEAT X1 IN CASE OF FEVER.
     Route: 048
     Dates: start: 20230124
  21. AUBAGIO [Concomitant]
     Active Substance: TERIFLUNOMIDE
     Indication: Product used for unknown indication
     Dosage: UNK
     Route: 065
  22. GAMUNEX-C [Concomitant]
     Active Substance: HUMAN IMMUNOGLOBULIN G
     Indication: Product used for unknown indication
     Dosage: 35 G,  ADMINISTER 35 GM X1 DOSE - 2 MG/KG/MIN.
     Route: 042
     Dates: start: 20230121

REACTIONS (9)
  - Hypogammaglobulinaemia [Unknown]
  - Blood immunoglobulin G decreased [Recovering/Resolving]
  - Relapsing multiple sclerosis [Unknown]
  - COVID-19 [Unknown]
  - Urinary tract infection [Unknown]
  - Lymphopenia [Unknown]
  - Micturition urgency [Unknown]
  - Upper respiratory tract infection [Recovered/Resolved]
  - Expired product administered [Unknown]

NARRATIVE: CASE EVENT DATE: 20220701
